FAERS Safety Report 9858439 (Version 3)
Quarter: 2014Q4

REPORT INFORMATION
  Report Type: Spontaneous
  Country: FR (occurrence: None)
  Receive Date: 20140129
  Receipt Date: 20141118
  Transmission Date: 20150529
  Serious: Yes (Other)
  Sender: FDA-Public Use
  Company Number: 2014-FR-000729

PATIENT
  Age: 55 Year
  Sex: Female
  Weight: 67 kg

DRUGS (4)
  1. XYREM [Suspect]
     Active Substance: SODIUM OXYBATE
     Indication: NARCOLEPSY
     Dosage: 2.25 G, BID, ORAL
     Route: 048
     Dates: start: 20131028
  2. XYREM [Suspect]
     Active Substance: SODIUM OXYBATE
     Indication: CATAPLEXY
     Dosage: 2.25 G, BID, ORAL
     Route: 048
     Dates: start: 20131028
  3. SEROPLEX (ESCITALOPRAM OXALATE) [Concomitant]
     Active Substance: ESCITALOPRAM OXALATE
  4. MODIODAL (MODAFINIL) [Concomitant]

REACTIONS (15)
  - Face oedema [None]
  - Eye oedema [None]
  - Migraine [None]
  - Tooth disorder [None]
  - Eye infection [None]
  - Muscle spasms [None]
  - Infection [None]
  - Pain in extremity [None]
  - Burning sensation [None]
  - Hot flush [None]
  - Fatigue [None]
  - Drug dose omission [None]
  - Headache [None]
  - Chest pain [None]
  - Dyspnoea [None]

NARRATIVE: CASE EVENT DATE: 20131030
